FAERS Safety Report 4587413-2 (Version None)
Quarter: 2005Q1

REPORT INFORMATION
  Report Type: 
  Country: None (occurrence: None)
  Receive Date: 20050218
  Receipt Date: 20050209
  Transmission Date: 20050727
  Serious: Yes (Life-Threatening, Hospitalization, Other)
  Sender: FDA-Public Use
  Company Number: US-JNJFOC-20030706882

PATIENT
  Sex: Male
  Weight: 84 kg

DRUGS (8)
  1. REMICADE [Suspect]
     Indication: RHEUMATOID ARTHRITIS
     Route: 042
  2. METHOTREXATE [Concomitant]
  3. CELLCEPT [Concomitant]
  4. PREDNISONE [Concomitant]
  5. TOPROL-XL [Concomitant]
  6. ZESTRIL [Concomitant]
  7. ANALGESICS [Concomitant]
  8. NSAID'S [Concomitant]

REACTIONS (2)
  - CORONARY ARTERY SURGERY [None]
  - NON-SMALL CELL LUNG CANCER [None]
